FAERS Safety Report 17883961 (Version 1)
Quarter: 2020Q2

REPORT INFORMATION
  Report Type: Spontaneous
  Country: US (occurrence: US)
  Receive Date: 20200611
  Receipt Date: 20200611
  Transmission Date: 20200714
  Serious: No
  Sender: FDA-Public Use
  Company Number: US-MYLANLABS-2020M1053277

PATIENT
  Sex: Female

DRUGS (2)
  1. METOPROLOL. [Suspect]
     Active Substance: METOPROLOL
     Indication: HYPERTENSION
     Dosage: ONCE DAILY (1 TABLET)
     Route: 048
  2. METOPROLOL. [Suspect]
     Active Substance: METOPROLOL
     Dosage: ONE HALF TABLET
     Route: 048
     Dates: start: 2020

REACTIONS (2)
  - Drug ineffective [Unknown]
  - Blood pressure decreased [Unknown]
